FAERS Safety Report 11904619 (Version 1)
Quarter: 2016Q1

REPORT INFORMATION
  Report Type: Spontaneous
  Country: US (occurrence: US)
  Receive Date: 20160108
  Receipt Date: 20160108
  Transmission Date: 20160526
  Serious: Yes (Hospitalization)
  Sender: FDA-Public Use
  Company Number: US-ROCHE-1646372

PATIENT
  Age: 28 Year
  Sex: Female

DRUGS (6)
  1. FERROUS SULFATE [Concomitant]
     Active Substance: FERROUS SULFATE\FERROUS SULFATE, DRIED
     Route: 065
  2. LABETALOL [Concomitant]
     Active Substance: LABETALOL\LABETALOL HYDROCHLORIDE
     Route: 065
  3. NORETHINDRONE. [Concomitant]
     Active Substance: NORETHINDRONE
     Route: 065
  4. ACTIVASE [Suspect]
     Active Substance: ALTEPLASE
     Indication: CEREBROVASCULAR ACCIDENT
     Route: 065
     Dates: start: 20150825
  5. IBUPROFEN. [Concomitant]
     Active Substance: IBUPROFEN
     Dosage: AS NEEDED
     Route: 065
  6. COLACE [Concomitant]
     Active Substance: DOCUSATE SODIUM
     Route: 065

REACTIONS (2)
  - Seizure [Recovered/Resolved]
  - Rash [Unknown]

NARRATIVE: CASE EVENT DATE: 20150825
